FAERS Safety Report 21108149 (Version 1)
Quarter: 2022Q3

REPORT INFORMATION
  Report Type: Spontaneous
  Country: US (occurrence: US)
  Receive Date: 20220720
  Receipt Date: 20220720
  Transmission Date: 20221026
  Serious: No
  Sender: FDA-Public Use
  Company Number: US-SA-SAC20220715001427

PATIENT
  Age: 68 Year
  Sex: Female

DRUGS (32)
  1. DUPIXENT [Suspect]
     Active Substance: DUPILUMAB
     Indication: Asthma
     Dosage: 300MG, QOW
     Route: 058
  2. EPINEPHRINE [Concomitant]
     Active Substance: EPINEPHRINE
  3. DIPHENHYDRAMINE [Concomitant]
     Active Substance: DIPHENHYDRAMINE
  4. ACETAMINOPHEN [Concomitant]
     Active Substance: ACETAMINOPHEN
  5. CUVITRU [Concomitant]
     Active Substance: HUMAN IMMUNOGLOBULIN G
  6. KEFLEX [Concomitant]
     Active Substance: CEPHALEXIN
  7. VITAMIN C [Concomitant]
     Active Substance: ASCORBIC ACID
  8. CLONIDINE HYDROCHLORIDE [Concomitant]
     Active Substance: CLONIDINE HYDROCHLORIDE
  9. PREDNISONE [Concomitant]
     Active Substance: PREDNISONE
  10. QUETIAPINE FUMARATE [Concomitant]
     Active Substance: QUETIAPINE FUMARATE
  11. CALCIUM;MAGNESIUM;NUTRIENTS NOS;VITAMIN D NOS;ZINC [Concomitant]
  12. METOPROLOL TARTRATE [Concomitant]
     Active Substance: METOPROLOL TARTRATE
  13. FISH OIL [Concomitant]
     Active Substance: FISH OIL
  14. ALPRAZOLAM [Concomitant]
     Active Substance: ALPRAZOLAM
  15. VITAMIN D2 [Concomitant]
     Active Substance: ERGOCALCIFEROL
  16. MELOXICAM [Concomitant]
     Active Substance: MELOXICAM
  17. BUPROPION [Concomitant]
     Active Substance: BUPROPION
  18. CONCERTA [Concomitant]
     Active Substance: METHYLPHENIDATE HYDROCHLORIDE
     Dosage: ER 24
  19. NYSTATIN [Concomitant]
     Active Substance: NYSTATIN
     Route: 048
  20. TIZANIDINE HYDROCHLORIDE [Concomitant]
     Active Substance: TIZANIDINE HYDROCHLORIDE
  21. LASIX [Concomitant]
     Active Substance: FUROSEMIDE
  22. SPIRIVA [Concomitant]
     Active Substance: TIOTROPIUM BROMIDE MONOHYDRATE
     Dosage: CAP W/DEV
  23. FERROUS SULFATE [Concomitant]
     Active Substance: FERROUS SULFATE
  24. PERCOCET [Concomitant]
     Active Substance: ACETAMINOPHEN\OXYCODONE HYDROCHLORIDE
  25. POTASSIUM CHLORIDE [Concomitant]
     Active Substance: POTASSIUM CHLORIDE
  26. THEOPHYLLINE [Concomitant]
     Active Substance: THEOPHYLLINE
  27. DALIRESP [Concomitant]
     Active Substance: ROFLUMILAST
  28. ADVAIR HFA [Concomitant]
     Active Substance: FLUTICASONE PROPIONATE\SALMETEROL XINAFOATE
  29. DOXYCYCLINE HYCLATE [Concomitant]
     Active Substance: DOXYCYCLINE HYCLATE
  30. SYNTHROID [Concomitant]
     Active Substance: LEVOTHYROXINE SODIUM
  31. VITAMIN E [Concomitant]
     Active Substance: .ALPHA.-TOCOPHEROL
  32. PROBIOTICS NOS [Concomitant]
     Active Substance: PROBIOTICS NOS

REACTIONS (3)
  - Skin disorder [Unknown]
  - Skin fragility [Unknown]
  - Skin laceration [Unknown]
